FAERS Safety Report 12367850 (Version 1)
Quarter: 2016Q2

REPORT INFORMATION
  Report Type: Spontaneous
  Country: US (occurrence: US)
  Receive Date: 20160513
  Receipt Date: 20160513
  Transmission Date: 20160815
  Serious: Yes (Hospitalization, Other)
  Sender: FDA-Public Use
  Company Number: US-MDT-ADR-2015-02419

PATIENT
  Age: 59 Year
  Sex: Male

DRUGS (1)
  1. LIORESAL [Suspect]
     Active Substance: BACLOFEN
     Route: 037

REACTIONS (4)
  - Implant site infection [Recovering/Resolving]
  - Pocket erosion [Recovering/Resolving]
  - Staphylococcus test positive [Recovering/Resolving]
  - Wound dehiscence [Recovering/Resolving]
